FAERS Safety Report 16129212 (Version 1)
Quarter: 2019Q1

REPORT INFORMATION
  Report Type: Spontaneous
  Country: US (occurrence: US)
  Receive Date: 20190328
  Receipt Date: 20190328
  Transmission Date: 20190418
  Serious: No
  Sender: FDA-Public Use
  Company Number: US-GLAXOSMITHKLINE-US2019052557

PATIENT
  Age: 55 Year
  Sex: Female

DRUGS (2)
  1. FLONASE [Suspect]
     Active Substance: FLUTICASONE PROPIONATE
     Indication: RHINORRHOEA
  2. FLONASE [Suspect]
     Active Substance: FLUTICASONE PROPIONATE
     Indication: SNEEZING
     Dosage: ON 1ST DAY PATIENT USED 2 SPRAYS PER NOSTRIL TWICE AND ON 2ND DAY SHE USED 3 SPRAYS PER NOSTRIL
     Route: 045
     Dates: start: 20190320

REACTIONS (6)
  - Condition aggravated [Not Recovered/Not Resolved]
  - Sneezing [Not Recovered/Not Resolved]
  - Inappropriate schedule of product administration [Unknown]
  - Rhinorrhoea [Not Recovered/Not Resolved]
  - Incorrect dose administered [Unknown]
  - Drug ineffective [Unknown]

NARRATIVE: CASE EVENT DATE: 20190320
